FAERS Safety Report 15821365 (Version 1)
Quarter: 2019Q1

REPORT INFORMATION
  Report Type: Report from Study
  Country: US (occurrence: US)
  Receive Date: 20190114
  Receipt Date: 20190114
  Transmission Date: 20190417
  Serious: Yes (Other)
  Sender: FDA-Public Use
  Company Number: US-SA-2019SA007567

PATIENT
  Age: 61 Year
  Sex: Male

DRUGS (1)
  1. INSULIN GLARGINE [Suspect]
     Active Substance: INSULIN GLARGINE
     Indication: TYPE 2 DIABETES MELLITUS
     Dosage: 45 U, BID

REACTIONS (8)
  - Diabetic neuropathy [Unknown]
  - Type V hyperlipidaemia [Unknown]
  - Product use issue [Unknown]
  - Diabetes mellitus [Unknown]
  - Hypertension [Unknown]
  - Oedema peripheral [Unknown]
  - Depression [Unknown]
  - Insomnia [Unknown]

NARRATIVE: CASE EVENT DATE: 20170315
